FAERS Safety Report 12993114 (Version 1)
Quarter: 2016Q4

REPORT INFORMATION
  Report Type: Spontaneous
  Country: CN (occurrence: CN)
  Receive Date: 20161202
  Receipt Date: 20161202
  Transmission Date: 20170207
  Serious: Yes (Hospitalization)
  Sender: FDA-Public Use
  Company Number: CN-ROCHE-1863058

PATIENT
  Age: 46 Year
  Sex: Male
  Weight: 69 kg

DRUGS (1)
  1. XELODA [Suspect]
     Active Substance: CAPECITABINE
     Indication: COLON CANCER
     Route: 048
     Dates: start: 20160721, end: 20160722

REACTIONS (1)
  - Psychotic disorder [Recovering/Resolving]

NARRATIVE: CASE EVENT DATE: 20160722
